FAERS Safety Report 17891083 (Version 1)
Quarter: 2020Q2

REPORT INFORMATION
  Report Type: Report from Study
  Country: US (occurrence: US)
  Receive Date: 20200612
  Receipt Date: 20200612
  Transmission Date: 20200714
  Serious: Yes (Death, Hospitalization)
  Sender: FDA-Public Use
  Company Number: US-PFIZER INC-2019-05081

PATIENT
  Age: 58 Year
  Sex: Female
  Weight: 83.5 kg

DRUGS (3)
  1. BINIMETINIB [Suspect]
     Active Substance: BINIMETINIB
     Indication: NON-SMALL CELL LUNG CANCER
     Dosage: 45 MG, 2X/DAY
     Route: 048
     Dates: start: 20180816, end: 20181206
  2. PALBOCICLIB [Suspect]
     Active Substance: PALBOCICLIB
     Indication: NON-SMALL CELL LUNG CANCER
     Dosage: 100 MG, 1X/DAY (DAYS 1 TO 21 OF 28)
     Route: 048
     Dates: start: 20180816, end: 20190129
  3. BINIMETINIB [Suspect]
     Active Substance: BINIMETINIB
     Dosage: 30 MG, 2X/DAY
     Dates: start: 20190109, end: 20190130

REACTIONS (6)
  - Dyspnoea [Not Recovered/Not Resolved]
  - Atrial fibrillation [Not Recovered/Not Resolved]
  - Pneumonitis [Recovering/Resolving]
  - Hypertension [Not Recovered/Not Resolved]
  - Neoplasm progression [Fatal]
  - Hypoxia [Not Recovered/Not Resolved]

NARRATIVE: CASE EVENT DATE: 20190130
